FAERS Safety Report 21046050 (Version 17)
Quarter: 2025Q2

REPORT INFORMATION
  Report Type: Report from Study
  Country: CA (occurrence: CA)
  Receive Date: 20220706
  Receipt Date: 20250617
  Transmission Date: 20250716
  Serious: Yes (Hospitalization, Other)
  Sender: TAKEDA
  Company Number: CA-TAKEDA-2020TUS059226

PATIENT
  Age: 21 Year
  Sex: Female

DRUGS (16)
  1. ICATIBANT [Suspect]
     Active Substance: ICATIBANT ACETATE
     Indication: Hereditary angioedema
  2. ICATIBANT [Suspect]
     Active Substance: ICATIBANT ACETATE
     Indication: Hereditary angioedema with C1 esterase inhibitor deficiency
  3. ICATIBANT [Suspect]
     Active Substance: ICATIBANT ACETATE
  4. ICATIBANT [Suspect]
     Active Substance: ICATIBANT ACETATE
  5. ICATIBANT [Suspect]
     Active Substance: ICATIBANT ACETATE
  6. ICATIBANT [Suspect]
     Active Substance: ICATIBANT ACETATE
  7. ICATIBANT [Suspect]
     Active Substance: ICATIBANT ACETATE
  8. ICATIBANT [Suspect]
     Active Substance: ICATIBANT ACETATE
  9. ICATIBANT [Suspect]
     Active Substance: ICATIBANT ACETATE
  10. ICATIBANT [Suspect]
     Active Substance: ICATIBANT ACETATE
  11. ICATIBANT [Suspect]
     Active Substance: ICATIBANT ACETATE
  12. ICATIBANT [Suspect]
     Active Substance: ICATIBANT ACETATE
  13. ICATIBANT [Suspect]
     Active Substance: ICATIBANT ACETATE
  14. ICATIBANT [Suspect]
     Active Substance: ICATIBANT ACETATE
  15. ICATIBANT [Suspect]
     Active Substance: ICATIBANT ACETATE
  16. BERINERT [Concomitant]
     Active Substance: HUMAN C1-ESTERASE INHIBITOR

REACTIONS (5)
  - Anaphylactic shock [Not Recovered/Not Resolved]
  - Accident at work [Recovering/Resolving]
  - Drug ineffective [Unknown]
  - Pregnancy [Recovered/Resolved]
  - Expired product administered [Recovered/Resolved]

NARRATIVE: CASE EVENT DATE: 20210517
